FAERS Safety Report 6937506-7 (Version None)
Quarter: 2010Q3

REPORT INFORMATION
  Report Type: 
  Country: None (occurrence: None)
  Receive Date: 20100823
  Receipt Date: 20100810
  Transmission Date: 20110219
  Serious: Yes (Hospitalization, Other)
  Sender: FDA-Public Use
  Company Number: PHEH2005US01512

PATIENT
  Sex: Female
  Weight: 163 kg

DRUGS (4)
  1. AREDIA [Suspect]
     Indication: BONE DENSITY DECREASED
     Dosage: MONTHLY
     Dates: end: 20030909
  2. ZOMETA [Suspect]
     Indication: BREAST CANCER
  3. TAMOXIFEN CITRATE [Concomitant]
  4. PROCRIT                            /00909301/ [Concomitant]

REACTIONS (26)
  - ANXIETY [None]
  - ARTERIOSCLEROSIS [None]
  - BLOOD CREATININE INCREASED [None]
  - BLOOD GLUCOSE INCREASED [None]
  - BLOOD TRIGLYCERIDES INCREASED [None]
  - BLOOD UREA INCREASED [None]
  - BONE DISORDER [None]
  - BONE LESION [None]
  - DENTAL FISTULA [None]
  - FALL [None]
  - GENERAL PHYSICAL CONDITION ABNORMAL [None]
  - HAEMATOCRIT DECREASED [None]
  - HAEMOGLOBIN DECREASED [None]
  - INFLAMMATION [None]
  - INJURY [None]
  - LIMB INJURY [None]
  - LOW DENSITY LIPOPROTEIN INCREASED [None]
  - LYMPHOCYTE COUNT DECREASED [None]
  - OSTEONECROSIS OF JAW [None]
  - PAIN [None]
  - PAIN IN JAW [None]
  - RED BLOOD CELL COUNT DECREASED [None]
  - RIB FRACTURE [None]
  - SWELLING FACE [None]
  - TOOTH EXTRACTION [None]
  - WOUND DRAINAGE [None]
